FAERS Safety Report 4860651-7 (Version None)
Quarter: 2005Q4

REPORT INFORMATION
  Report Type: 
  Country: None (occurrence: None)
  Receive Date: 20051216
  Receipt Date: 20051130
  Transmission Date: 20060501
  Serious: Yes (Hospitalization)
  Sender: FDA-Public Use
  Company Number: 200511IM000781

PATIENT
  Age: 51 Year
  Sex: Male
  Weight: 70.7611 kg

DRUGS (10)
  1. INFERGEN [Suspect]
     Indication: HEPATITIS C
     Dosage: 15 UG, QD, SUBCUTANEOUS
     Route: 058
     Dates: start: 20050927, end: 20051101
  2. INFERGEN [Suspect]
     Indication: HEPATITIS C
     Dosage: 15 UG, QD, SUBCUTANEOUS
     Route: 058
     Dates: start: 20051128
  3. RIBAVIRIN [Concomitant]
  4. SONATA [Concomitant]
  5. EFFEXOR [Concomitant]
  6. MILK THISTLE [Concomitant]
  7. CAT'S CLAW [Concomitant]
  8. VITAMIN C WITH ROSE HIP [Concomitant]
  9. VITAMIN E [Concomitant]
  10. LORAZEPAM [Concomitant]

REACTIONS (6)
  - BACK PAIN [None]
  - DYSGEUSIA [None]
  - INFLUENZA LIKE ILLNESS [None]
  - PYREXIA [None]
  - SEPSIS [None]
  - URINARY TRACT INFECTION [None]
